FAERS Safety Report 5467708-0 (Version None)
Quarter: 2007Q3

REPORT INFORMATION
  Report Type: 
  Country: None (occurrence: None)
  Receive Date: 20070925
  Receipt Date: 20070914
  Transmission Date: 20080115
  Serious: Yes (Other)
  Sender: FDA-Public Use
  Company Number: IE-ELI_LILLY_AND_COMPANY-IE200709000481

PATIENT
  Age: 65 Year
  Sex: Female

DRUGS (4)
  1. BYETTA [Suspect]
     Indication: DIABETES MELLITUS
     Dosage: 5 UG, UNKNOWN
     Route: 058
     Dates: start: 20070516, end: 20070710
  2. METFORMIN HCL [Concomitant]
  3. ATORVASTATIN CALCIUM [Concomitant]
  4. ASPIRIN [Concomitant]

REACTIONS (2)
  - CARDIAC FAILURE [None]
  - ELECTROCARDIOGRAM ABNORMAL [None]
